FAERS Safety Report 7400476-1 (Version None)
Quarter: 2011Q1

REPORT INFORMATION
  Report Type: 
  Country: None (occurrence: None)
  Receive Date: 20110329
  Receipt Date: 20110323
  Transmission Date: 20110831
  Serious: Yes (Other)
  Sender: FDA-Public Use
  Company Number: 1000019459

PATIENT
  Age: 46 Year
  Sex: Female

DRUGS (1)
  1. LEXAPRO [Suspect]
     Indication: ANXIETY
     Dosage: 25 MG (1.25 MG, 1 IN 1 D), ORAL
     Route: 048
     Dates: start: 20060101, end: 20080101

REACTIONS (24)
  - BUTTERFLY RASH [None]
  - GAIT DISTURBANCE [None]
  - AUTOIMMUNE THYROIDITIS [None]
  - BLOOD PRESSURE INCREASED [None]
  - PSORIASIS [None]
  - PAIN IN EXTREMITY [None]
  - CERVICOBRACHIAL SYNDROME [None]
  - ANXIETY [None]
  - RESTLESSNESS [None]
  - VISUAL IMPAIRMENT [None]
  - ARTHRALGIA [None]
  - TOURETTE'S DISORDER [None]
  - SOMNOLENCE [None]
  - FALL [None]
  - DEPRESSION [None]
  - INSOMNIA [None]
  - NECK PAIN [None]
  - HEADACHE [None]
  - DYSKINESIA [None]
  - TREATMENT NONCOMPLIANCE [None]
  - RESTLESS LEGS SYNDROME [None]
  - TINNITUS [None]
  - DISTURBANCE IN ATTENTION [None]
  - NAIL DISORDER [None]
